FAERS Safety Report 18820412 (Version 1)
Quarter: 2021Q1

REPORT INFORMATION
  Report Type: Spontaneous
  Country: US (occurrence: US)
  Receive Date: 20210202
  Receipt Date: 20210202
  Transmission Date: 20210419
  Serious: Yes (Disabling)
  Sender: FDA-Public Use
  Company Number: US-TEVA-2021-US-1868100

PATIENT
  Age: 49 Year
  Sex: Female

DRUGS (19)
  1. DOCETAXEL PFIZER [Suspect]
     Active Substance: DOCETAXEL
     Indication: BREAST CANCER FEMALE
     Dosage: DOSAGE: UNKNOWN; NUMBER OF CYCLES: 04; EVERY THREE WEEKS
     Route: 065
     Dates: start: 20160121, end: 20160324
  2. NEOSAR [Concomitant]
     Active Substance: CYCLOPHOSPHAMIDE
     Indication: BREAST CANCER FEMALE
     Dosage: DOSAGE: UNKNOWN; NUMBER OF CYCLES: 04; EVERY THREE WEEKS
     Dates: start: 20160121, end: 20160324
  3. FAMOTIDINE. [Concomitant]
     Active Substance: FAMOTIDINE
     Dosage: 20MG IV DAILY INTERMITTENT OVER 20MIN FOR 1 DAY IN NS 50ML (4), AT THE RATE OF 155,00 ML/HR
     Dates: start: 20160121
  4. DOCETAXEL ACTAVIS [Suspect]
     Active Substance: DOCETAXEL
     Indication: BREAST CANCER FEMALE
     Dosage: DOSAGE: UNKNOWN; NUMBER OF CYCLES: 04; EVERY THREE WEEKS
     Route: 065
     Dates: start: 20160121, end: 20160324
  5. DIPHENHYDRAMINE HCL [Concomitant]
     Active Substance: DIPHENHYDRAMINE HYDROCHLORIDE
     Dosage: 50MG IV DAILY INTERMITTENT OVER 20MIN FOR 1 DAY IN NS 50ML, AT THE RATE OF 153,00 ML/HR
     Dates: start: 20160121
  6. PALONOSETRON HCL [Concomitant]
     Active Substance: PALONOSETRON HYDROCHLORIDE
     Dosage: DOSAGE: 0.25MG IV DAILY INTERMITTENT OVER 20MIN FOR 1 DAY IN NS 50ML (1) AT RATE OF I 65,00 ML/HR
     Dates: start: 20160121
  7. GLYCOLAX [Concomitant]
     Active Substance: POLYETHYLENE GLYCOL 3350
     Dosage: DOSAGE: 1 (17G); DAILY
     Route: 048
     Dates: start: 20151207
  8. DOCETAXEL SANDOZ [Suspect]
     Active Substance: DOCETAXEL
     Indication: BREAST CANCER FEMALE
     Dosage: DOSAGE: UNKNOWN; NUMBER OF CYCLES: 04; EVERY THREE WEEKS
     Route: 065
     Dates: start: 20160121, end: 20160324
  9. TAMOXIFEN [Concomitant]
     Active Substance: TAMOXIFEN
     Dates: start: 20160323
  10. BIOTIN [Concomitant]
     Active Substance: BIOTIN
     Dosage: 1 BOTTLE
     Dates: start: 2016
  11. DEXAMETHASONE SODIUM PHOSPHATE. [Concomitant]
     Active Substance: DEXAMETHASONE SODIUM PHOSPHATE
     Dosage: 10MG IV DAILY INTERMITTENT OVER 20MIN FOR 1 DAY IN NS 50ML
     Dates: start: 20160121
  12. DOCETAXEL HOSPIRA [Suspect]
     Active Substance: DOCETAXEL
     Indication: BREAST CANCER FEMALE
     Dosage: DOSAGE: UNKNOWN; NUMBER OF CYCLES: 04; EVERY THREE WEEKS
     Route: 065
     Dates: start: 20160121, end: 20160324
  13. ONDANSETRON HCL [Concomitant]
     Active Substance: ONDANSETRON HYDROCHLORIDE
     Dosage: DOSAGE: 8MG; EVERY 8 HOURS PRN (1) AT THE RATE OF I 65,00 ML/HR
     Route: 048
     Dates: start: 20160107
  14. DOCETAXEL SANOFI [Suspect]
     Active Substance: DOCETAXEL
     Indication: BREAST CANCER FEMALE
     Dosage: DOSAGE: UNKNOWN; NUMBER OF CYCLES: 04; EVERY THREE WEEKS
     Route: 065
     Dates: start: 20160121, end: 20160324
  15. DOCETAXEL MCKESSON [Suspect]
     Active Substance: DOCETAXEL
     Indication: BREAST CANCER FEMALE
     Dosage: DOSAGE: UNKNOWN; NUMBER OF CYCLES: 04; EVERY THREE WEEKS
     Route: 065
     Dates: start: 20160121, end: 20160324
  16. DEXAMETHASONE. [Concomitant]
     Active Substance: DEXAMETHASONE
     Dosage: DOSAGE: 4MG AS DIRECTED
     Route: 048
     Dates: start: 20160107
  17. TAXOTERE [Concomitant]
     Active Substance: DOCETAXEL
     Indication: BREAST CANCER FEMALE
     Dosage: DOSAGE: UNKNOWN; NUMBER OF CYCLES: 04; EVERY THREE WEEKS
     Dates: start: 20160121, end: 20160324
  18. MIRALAX [Concomitant]
     Active Substance: POLYETHYLENE GLYCOL 3350
  19. PROCHLORPERAZINE MALEATE. [Concomitant]
     Active Substance: PROCHLORPERAZINE MALEATE
     Dosage: DOSAGE: 10MG; EVERY 6 HOURS PRN
     Route: 048
     Dates: start: 20160107

REACTIONS (8)
  - Decreased appetite [Unknown]
  - Hair colour changes [Not Recovered/Not Resolved]
  - Nausea [Unknown]
  - Madarosis [Not Recovered/Not Resolved]
  - Vomiting [Unknown]
  - Hair texture abnormal [Not Recovered/Not Resolved]
  - Constipation [Unknown]
  - Alopecia areata [Not Recovered/Not Resolved]

NARRATIVE: CASE EVENT DATE: 2016
